FAERS Safety Report 5056678-5 (Version None)
Quarter: 2006Q2

REPORT INFORMATION
  Report Type: 
  Country: None (occurrence: None)
  Receive Date: 20060616
  Receipt Date: 20060421
  Transmission Date: 20061013
  Serious: No
  Sender: FDA-Public Use
  Company Number: 2006US000901

PATIENT
  Age: 65 Year
  Sex: Male

DRUGS (4)
  1. VESICARE [Suspect]
     Indication: URINARY INCONTINENCE
     Dosage: 5 MG, UID/QD, ORAL
     Route: 048
     Dates: start: 20060301, end: 20060420
  2. VIAGRA [Concomitant]
  3. CLONAZEPAM [Concomitant]
  4. MIRTAZAPINE [Concomitant]

REACTIONS (1)
  - URINARY RETENTION [None]
